FAERS Safety Report 4865326-6 (Version None)
Quarter: 2005Q4

REPORT INFORMATION
  Report Type: 
  Country: None (occurrence: None)
  Receive Date: 20051221
  Receipt Date: 20051221
  Transmission Date: 20060501
  Serious: Yes (Hospitalization)
  Sender: FDA-Public Use
  Company Number: None

PATIENT
  Age: 59 Year
  Sex: Male
  Weight: 80.6 kg

DRUGS (1)
  1. CAMPATH [Suspect]
     Indication: LYMPHOPLASMACYTOID LYMPHOMA/IMMUNOCYTOMA
     Dosage: 30 MG MON-WED-FRI IV BOLUS
     Route: 042
     Dates: start: 20050810, end: 20050907

REACTIONS (1)
  - PANCYTOPENIA [None]
